FAERS Safety Report 4378526-9 (Version None)
Quarter: 2004Q2

REPORT INFORMATION
  Report Type: 
  Country: None (occurrence: None)
  Receive Date: 20040616
  Receipt Date: 20040505
  Transmission Date: 20050107
  Serious: Yes (Hospitalization)
  Sender: FDA-Public Use
  Company Number: US-GLAXOSMITHKLINE-A0509783A

PATIENT
  Age: 68 Year
  Sex: Female
  Weight: 92.8 kg

DRUGS (3)
  1. CARVEDILOL [Suspect]
  2. DYAZIDE [Suspect]
     Indication: DIURETIC THERAPY
     Route: 048
     Dates: end: 20040504
  3. ALTACE [Suspect]
     Indication: HYPERTENSION
     Dosage: 2.5MG PER DAY
     Route: 048
     Dates: end: 20040504

REACTIONS (1)
  - PANCREATITIS [None]
